FAERS Safety Report 7918678 (Version 4)
Quarter: 2013Q2

REPORT INFORMATION
  Report Type: Spontaneous
  Country: US (occurrence: US)
  Receive Date: 20110428
  Receipt Date: 20130430
  Transmission Date: 20140414
  Serious: Yes (Hospitalization)
  Sender: FDA-Public Use
  Company Number: US-BAYER-2011-034582

PATIENT
  Age: 16 Year
  Sex: Female
  Weight: 59.41 kg

DRUGS (8)
  1. YAZ [Suspect]
     Dosage: UNK UNK, QD
     Dates: start: 200811, end: 20090618
  2. YASMIN [Suspect]
     Dosage: UNK
     Dates: start: 200811, end: 20090618
  3. OCELLA [Suspect]
     Dosage: UNK
     Dates: start: 200811, end: 20090618
  4. ADVIL [Concomitant]
     Indication: HEADACHE
     Dosage: 400 MG, UNK
  5. TYLENOL [Concomitant]
     Indication: HEADACHE
     Dosage: 400 MG, UNK
  6. TYLENOL EXTRA STRENGTH [Concomitant]
     Dosage: 500 MG, PRN
  7. LOESTRIN FE [Concomitant]
  8. ROCEPHIN [Concomitant]
     Indication: URINARY TRACT INFECTION

REACTIONS (7)
  - Pulmonary embolism [None]
  - Limb discomfort [None]
  - Swelling [None]
  - Injury [None]
  - Chest pain [None]
  - Anxiety [None]
  - Anhedonia [None]
